FAERS Safety Report 7723240-2 (Version None)
Quarter: 2011Q3

REPORT INFORMATION
  Report Type: 
  Country: None (occurrence: None)
  Receive Date: 20110901
  Receipt Date: 20110823
  Transmission Date: 20111222
  Serious: Yes (Hospitalization)
  Sender: FDA-Public Use
  Company Number: US-ASTRAZENECA-2009UW03345

PATIENT
  Sex: Male

DRUGS (5)
  1. CRESTOR [Suspect]
     Route: 048
  2. LISINOPRIL [Suspect]
     Route: 048
  3. ATACAND HCT [Suspect]
     Dosage: 16/12.5 MG
     Route: 048
  4. ATACAND [Suspect]
     Dosage: QD
     Route: 048
  5. TRAZODONE HYDROCHLORIDE [Concomitant]

REACTIONS (6)
  - BRONCHITIS [None]
  - BALANCE DISORDER [None]
  - DIZZINESS [None]
  - DRUG INEFFECTIVE [None]
  - MALAISE [None]
  - INAPPROPRIATE SCHEDULE OF DRUG ADMINISTRATION [None]
